FAERS Safety Report 10678945 (Version 1)
Quarter: 2014Q4

REPORT INFORMATION
  Report Type: Report from Study
  Country: US (occurrence: US)
  Receive Date: 20141229
  Receipt Date: 20141229
  Transmission Date: 20150529
  Serious: Yes (Other)
  Sender: FDA-Public Use
  Company Number: US-SA-2014SA179026

PATIENT

DRUGS (6)
  1. FLUDARABINE PHOSPHATE. [Suspect]
     Active Substance: FLUDARABINE PHOSPHATE
     Indication: MYELOID LEUKAEMIA
     Dosage: ADMINISTERED BY 30 MINUTES
     Route: 040
  2. CARBOPLATIN. [Suspect]
     Active Substance: CARBOPLATIN
     Indication: MYELOID LEUKAEMIA
     Dosage: CONTINOUS INFUSION OVER 120 HOUR
     Route: 041
  3. TOPOTECAN [Suspect]
     Active Substance: TOPOTECAN\TOPOTECAN HYDROCHLORIDE
     Indication: MYELOID LEUKAEMIA
     Route: 041
  4. THALIDOMIDE [Suspect]
     Active Substance: THALIDOMIDE
     Indication: MYELOID LEUKAEMIA
     Route: 048
  5. THALIDOMIDE [Suspect]
     Active Substance: THALIDOMIDE
     Indication: MYELOID LEUKAEMIA
     Dosage: STARTED AT THE DOSE OF 100 MG/DAY ORALLY FOR 1 WEEK AND FOLLOWED BY 200 MG/DAY
     Route: 048
  6. PYRIDOXINE [Concomitant]
     Active Substance: PYRIDOXINE
     Indication: PROPHYLAXIS

REACTIONS (3)
  - Bone marrow failure [Unknown]
  - Enterocolitis [Unknown]
  - Infection [Unknown]
